FAERS Safety Report 19960845 (Version 1)
Quarter: 2021Q4

REPORT INFORMATION
  Report Type: Spontaneous
  Country: US (occurrence: US)
  Receive Date: 20211016
  Receipt Date: 20211016
  Transmission Date: 20220303
  Serious: No
  Sender: FDA-Public Use
  Company Number: US-SA-SAC20211011000057

PATIENT
  Sex: Female

DRUGS (1)
  1. DUPIXENT [Suspect]
     Active Substance: DUPILUMAB
     Indication: Dermatitis contact
     Dosage: 300 MG, QOW
     Route: 058

REACTIONS (5)
  - Injection site bruising [Unknown]
  - Injection site pain [Recovering/Resolving]
  - Therapeutic response shortened [Unknown]
  - Product prescribing error [Unknown]
  - Product use in unapproved indication [Unknown]
